FAERS Safety Report 23063556 (Version 1)
Quarter: 2023Q4

REPORT INFORMATION
  Report Type: Report from Study
  Country: AR (occurrence: AR)
  Receive Date: 20231013
  Receipt Date: 20231013
  Transmission Date: 20240109
  Serious: Yes (Other)
  Sender: FDA-Public Use
  Company Number: AR-002147023-NVSC2023AR219817

PATIENT
  Age: 80 Year
  Sex: Female

DRUGS (2)
  1. COSENTYX [Suspect]
     Active Substance: SECUKINUMAB
     Indication: Psoriatic arthropathy
     Dosage: UNK
     Route: 065
     Dates: start: 20230315
  2. COSENTYX [Suspect]
     Active Substance: SECUKINUMAB
     Dosage: 1 DOSAGE FORM, EVERY 15 DAYS
     Route: 065

REACTIONS (2)
  - Psoriatic arthropathy [Unknown]
  - Off label use [Unknown]

NARRATIVE: CASE EVENT DATE: 20230901
